FAERS Safety Report 16641912 (Version 11)
Quarter: 2023Q2

REPORT INFORMATION
  Report Type: Spontaneous
  Country: CA (occurrence: CA)
  Receive Date: 20190729
  Receipt Date: 20230505
  Transmission Date: 20230722
  Serious: Yes (Hospitalization, Other)
  Sender: FDA-Public Use
  Company Number: CA-PFIZER INC-2019312728

PATIENT
  Age: 34 Year
  Sex: Male
  Weight: 98 kg

DRUGS (10)
  1. SOMAVERT [Suspect]
     Active Substance: PEGVISOMANT
     Indication: Acromegaly
     Dosage: 10 MG /DAY
     Route: 058
     Dates: start: 201903
  2. SOMAVERT [Suspect]
     Active Substance: PEGVISOMANT
     Dosage: 10 MG, DAILY
     Route: 058
     Dates: start: 2019
  3. SOMAVERT [Suspect]
     Active Substance: PEGVISOMANT
     Dosage: 10 MG EVERY OTHER DAY
     Route: 058
     Dates: end: 202006
  4. SOMAVERT [Suspect]
     Active Substance: PEGVISOMANT
     Dosage: 10 MG, DAILY
     Route: 058
     Dates: start: 202006
  5. SANDOSTATIN [Concomitant]
     Active Substance: OCTREOTIDE ACETATE
     Dosage: 20 MG BIWEEKLY
     Route: 030
  6. DOSTINEX [Concomitant]
     Active Substance: CABERGOLINE
     Dosage: 5 MG X 2 EVERYWEEK
  7. ANDROGEL [Concomitant]
     Active Substance: TESTOSTERONE
     Dosage: UNK
  8. TESTOSTERONE [Concomitant]
     Active Substance: TESTOSTERONE
     Dosage: 5 MG/DAY
  9. OMEGA 3 [Concomitant]
     Active Substance: CAPSAICIN
     Dosage: UNK
  10. VITAMIN B12 [Concomitant]
     Active Substance: CYANOCOBALAMIN
     Dosage: UNK
     Dates: start: 201810

REACTIONS (8)
  - Arterial haemorrhage [Unknown]
  - Pituitary tumour [Not Recovered/Not Resolved]
  - Malocclusion [Unknown]
  - Generalised tonic-clonic seizure [Unknown]
  - Fatigue [Unknown]
  - Blood iron decreased [Unknown]
  - Hypogonadism [Not Recovered/Not Resolved]
  - Insulin-like growth factor decreased [Recovered/Resolved]

NARRATIVE: CASE EVENT DATE: 20220101
